FAERS Safety Report 13866985 (Version 3)
Quarter: 2017Q3

REPORT INFORMATION
  Report Type: Spontaneous
  Country: CR (occurrence: CR)
  Receive Date: 20170814
  Receipt Date: 20170907
  Transmission Date: 20171127
  Serious: Yes (Other)
  Sender: FDA-Public Use
  Company Number: CR-REGENERON PHARMACEUTICALS, INC.-2017-20141

PATIENT

DRUGS (1)
  1. EYLEA [Suspect]
     Active Substance: AFLIBERCEPT
     Indication: DIABETIC RETINAL OEDEMA
     Dosage: (RECEIVED 3 INJECTIONS)

REACTIONS (2)
  - Diabetic retinal oedema [Unknown]
  - Inappropriate schedule of drug administration [Unknown]
